FAERS Safety Report 7013570-4 (Version None)
Quarter: 2010Q3

REPORT INFORMATION
  Report Type: 
  Country: None (occurrence: None)
  Receive Date: 20100924
  Receipt Date: 20100913
  Transmission Date: 20110219
  Serious: Yes (Hospitalization)
  Sender: FDA-Public Use
  Company Number: FR-ASTRAZENECA-2010SE43127

PATIENT
  Age: 77 Year
  Sex: Male

DRUGS (3)
  1. ZESTORETIC [Suspect]
     Indication: HYPERTENSION
     Route: 048
     Dates: start: 19990101, end: 20100610
  2. COVERAM [Suspect]
     Route: 048
     Dates: start: 20100611, end: 20100614
  3. TRIATEC [Suspect]
     Route: 065
     Dates: start: 20100615, end: 20100617

REACTIONS (3)
  - ANGIOEDEMA [None]
  - CERVIX ERYTHEMA [None]
  - TONGUE OEDEMA [None]
